FAERS Safety Report 11692038 (Version 3)
Quarter: 2015Q4

REPORT INFORMATION
  Report Type: Spontaneous
  Country: AT (occurrence: AT)
  Receive Date: 20151103
  Receipt Date: 20151118
  Transmission Date: 20160304
  Serious: Yes (Hospitalization)
  Sender: FDA-Public Use
  Company Number: AT-AMGEN-AUTSP2015114649

PATIENT
  Age: 90 Year
  Sex: Female
  Weight: 56 kg

DRUGS (1)
  1. ENBREL [Suspect]
     Active Substance: ETANERCEPT
     Indication: RHEUMATOID ARTHRITIS
     Dosage: 50 MG, UNK
     Route: 058
     Dates: start: 200808

REACTIONS (1)
  - Aortic stenosis [Recovered/Resolved]

NARRATIVE: CASE EVENT DATE: 20150328
